FAERS Safety Report 8363866-9 (Version None)
Quarter: 2012Q2

REPORT INFORMATION
  Report Type: 
  Country: None (occurrence: None)
  Receive Date: 20120516
  Receipt Date: 20120118
  Transmission Date: 20120825
  Serious: Yes (Hospitalization)
  Sender: FDA-Public Use
  Company Number: US-ALEXION-A201200092

PATIENT
  Sex: Male

DRUGS (12)
  1. LASIX [Concomitant]
  2. VITAMIN B-12 [Concomitant]
     Indication: ANAEMIA VITAMIN B12 DEFICIENCY
     Dosage: UNK, QMONTH
  3. COUMADIN [Concomitant]
  4. ZYRTEC [Concomitant]
  5. SOLIRIS [Suspect]
     Indication: PAROXYSMAL NOCTURNAL HAEMOGLOBINURIA
     Dosage: 600 MG, QW
     Route: 042
     Dates: start: 20110106, end: 20110101
  6. MECLIZINE [Concomitant]
  7. COMBIVENT [Concomitant]
  8. SINGULAIR [Concomitant]
  9. XOPENEX [Concomitant]
  10. SOLIRIS [Suspect]
     Dosage: 900 MG, Q2W
     Route: 042
     Dates: start: 20110216, end: 20111026
  11. SOLIRIS [Suspect]
     Dosage: 1200 MG, Q2W
     Route: 042
     Dates: start: 20111109
  12. LOPRESSOR [Concomitant]

REACTIONS (3)
  - GASTROINTESTINAL HAEMORRHAGE [None]
  - RECTAL HAEMORRHAGE [None]
  - HYPERTENSION [None]
